FAERS Safety Report 6748684-7 (Version None)
Quarter: 2010Q2

REPORT INFORMATION
  Report Type: 
  Country: None (occurrence: None)
  Receive Date: 20100601
  Receipt Date: 20100519
  Transmission Date: 20101027
  Serious: Yes (Other)
  Sender: FDA-Public Use
  Company Number: GB-JNJFOC-20100508503

PATIENT
  Age: 18 Year
  Sex: Female

DRUGS (1)
  1. INFLIXIMAB [Suspect]
     Indication: CUTANEOUS SARCOIDOSIS
     Route: 042

REACTIONS (1)
  - CUTANEOUS TUBERCULOSIS [None]
